FAERS Safety Report 11524767 (Version 1)
Quarter: 2015Q3

REPORT INFORMATION
  Report Type: Spontaneous
  Country: US (occurrence: US)
  Receive Date: 20150918
  Receipt Date: 20150918
  Transmission Date: 20151125
  Serious: No
  Sender: FDA-Public Use
  Company Number: US-ROCHE-710676

PATIENT
  Age: 58 Year
  Sex: Male

DRUGS (7)
  1. LANTUS [Concomitant]
     Active Substance: INSULIN GLARGINE
     Route: 065
  2. PEGASYS [Suspect]
     Active Substance: PEGINTERFERON ALFA-2A
     Indication: HEPATITIS C
     Dosage: FORM: PRE-FILLED SYRINGES, WEEK 6
     Route: 065
  3. GABAPENTIN. [Concomitant]
     Active Substance: GABAPENTIN
     Route: 065
  4. RIBASPHERE RIBAPAK [Suspect]
     Active Substance: RIBAVIRIN
     Indication: HEPATITIS C
     Dosage: DIVIDED DOSE, WHITE CAPSULES, WEEK 6
     Route: 065
  5. HYDROCHLOROTHIAZIDE/LISINOPRIL [Concomitant]
     Active Substance: HYDROCHLOROTHIAZIDE\LISINOPRIL
     Route: 065
  6. AMBIEN [Concomitant]
     Active Substance: ZOLPIDEM TARTRATE
     Route: 065
  7. CYMBALTA [Concomitant]
     Active Substance: DULOXETINE HYDROCHLORIDE
     Route: 065

REACTIONS (10)
  - Crying [Not Recovered/Not Resolved]
  - Weight decreased [Unknown]
  - Post procedural infection [Recovered/Resolved]
  - Decreased appetite [Recovering/Resolving]
  - Insomnia [Not Recovered/Not Resolved]
  - Agoraphobia [Not Recovered/Not Resolved]
  - Blood glucose abnormal [Unknown]
  - Rash [Not Recovered/Not Resolved]
  - Malaise [Unknown]
  - Activities of daily living impaired [Unknown]

NARRATIVE: CASE EVENT DATE: 20100526
